FAERS Safety Report 4612127-X (Version None)
Quarter: 2005Q2

REPORT INFORMATION
  Report Type: 
  Country: None (occurrence: None)
  Receive Date: 20050308
  Receipt Date: 20041215
  Transmission Date: 20051028
  Serious: Yes (Other)
  Sender: FDA-Public Use
  Company Number: 2004UW24368

PATIENT
  Age: 75 Year
  Sex: Male
  Weight: 74.842 kg

DRUGS (4)
  1. CRESTOR [Suspect]
     Indication: BLOOD CHOLESTEROL INCREASED
     Dosage: 10 MG DAILY PO
     Route: 048
     Dates: start: 20041116
  2. LEVAQUIN [Concomitant]
  3. NIACIN [Concomitant]
  4. VITAMINS [Concomitant]

REACTIONS (7)
  - ANEURYSM [None]
  - BLISTER [None]
  - BLOODY DISCHARGE [None]
  - CONTUSION [None]
  - ERYTHEMA [None]
  - HERPES SIMPLEX [None]
  - VISUAL ACUITY REDUCED [None]
